FAERS Safety Report 12576021 (Version 1)
Quarter: 2016Q3

REPORT INFORMATION
  Report Type: Spontaneous
  Country: US (occurrence: US)
  Receive Date: 20160720
  Receipt Date: 20160720
  Transmission Date: 20161109
  Serious: Yes (Other)
  Sender: FDA-Public Use
  Company Number: US-OTSUKA-2016_017377

PATIENT
  Sex: Female

DRUGS (1)
  1. REXULTI [Suspect]
     Active Substance: BREXPIPRAZOLE
     Indication: PRODUCT USED FOR UNKNOWN INDICATION
     Dosage: 0.5 MG, UNK
     Route: 065
     Dates: start: 201607, end: 201607

REACTIONS (4)
  - Pyrexia [Unknown]
  - Neuroleptic malignant syndrome [Unknown]
  - Confusional state [Unknown]
  - Oedema [Unknown]

NARRATIVE: CASE EVENT DATE: 20160706
